FAERS Safety Report 16219071 (Version 3)
Quarter: 2021Q3

REPORT INFORMATION
  Report Type: Spontaneous
  Country: US (occurrence: US)
  Receive Date: 20190419
  Receipt Date: 20210719
  Transmission Date: 20211014
  Serious: Yes (Death, Other)
  Sender: FDA-Public Use
  Company Number: US-ASTRAZENECA-2019SE11112

PATIENT
  Age: 69 Year
  Sex: Female
  Weight: 93.4 kg

DRUGS (27)
  1. NEXIUM [Suspect]
     Active Substance: ESOMEPRAZOLE MAGNESIUM
     Indication: GASTROOESOPHAGEAL REFLUX DISEASE
     Dosage: 40.0MG UNKNOWN
     Route: 048
     Dates: start: 2014, end: 2018
  2. HYDRALAZINE [Concomitant]
     Active Substance: HYDRALAZINE HYDROCHLORIDE
     Indication: BLOOD PRESSURE ABNORMAL
     Dates: start: 201402, end: 201512
  3. ASPIRIN. [Concomitant]
     Active Substance: ASPIRIN
     Dates: start: 2010
  4. SIMVASTATIN. [Concomitant]
     Active Substance: SIMVASTATIN
  5. TRAMADOL HCL [Concomitant]
     Active Substance: TRAMADOL HYDROCHLORIDE
  6. NIFEDIPINE. [Concomitant]
     Active Substance: NIFEDIPINE
  7. BYSTOLIC [Concomitant]
     Active Substance: NEBIVOLOL HYDROCHLORIDE
  8. CALCITROL [Concomitant]
  9. LOSARTAN. [Concomitant]
     Active Substance: LOSARTAN
     Indication: BLOOD PRESSURE ABNORMAL
     Dates: start: 201402, end: 201511
  10. NEXIUM [Suspect]
     Active Substance: ESOMEPRAZOLE MAGNESIUM
     Indication: GASTROOESOPHAGEAL REFLUX DISEASE
     Dosage: UNKNOWN
     Route: 048
  11. METOLAZONE. [Concomitant]
     Active Substance: METOLAZONE
  12. LEVEMIR [Concomitant]
     Active Substance: INSULIN DETEMIR
  13. FUROSEMIDE. [Concomitant]
     Active Substance: FUROSEMIDE
  14. CRANBERRY. [Concomitant]
     Active Substance: CRANBERRY
     Dates: start: 2010
  15. ISOSORBIDE MONONITRATE. [Concomitant]
     Active Substance: ISOSORBIDE MONONITRATE
  16. SIMVASTATIN. [Concomitant]
     Active Substance: SIMVASTATIN
     Indication: BLOOD CHOLESTEROL ABNORMAL
     Dates: start: 201402, end: 201511
  17. TRAMADOL. [Concomitant]
     Active Substance: TRAMADOL
     Indication: PAIN
     Dates: start: 201404, end: 201409
  18. CLARITIN [Concomitant]
     Active Substance: LORATADINE
     Dates: start: 2010
  19. HYDRALAZINE [Concomitant]
     Active Substance: HYDRALAZINE HYDROCHLORIDE
  20. ALLOPURINOL. [Concomitant]
     Active Substance: ALLOPURINOL
     Indication: GOUT
     Dates: start: 201402
  21. FUROSEMIDE. [Concomitant]
     Active Substance: FUROSEMIDE
     Indication: SWELLING
     Dates: start: 201402, end: 201511
  22. LEVOTHYROXINE. [Concomitant]
     Active Substance: LEVOTHYROXINE
  23. CLONIDINE. [Concomitant]
     Active Substance: CLONIDINE
  24. ULORIC [Concomitant]
     Active Substance: FEBUXOSTAT
  25. LOSARTAN. [Concomitant]
     Active Substance: LOSARTAN
  26. ALEOVERA [Concomitant]
     Dates: start: 2010
  27. VITAMIN C [Concomitant]
     Active Substance: ASCORBIC ACID
     Dates: start: 2010

REACTIONS (4)
  - Death [Fatal]
  - Chronic kidney disease [Not Recovered/Not Resolved]
  - Renal failure [Unknown]
  - Rebound acid hypersecretion [Unknown]

NARRATIVE: CASE EVENT DATE: 2015
